FAERS Safety Report 19085008 (Version 1)
Quarter: 2021Q2

REPORT INFORMATION
  Report Type: Report from Study
  Country: US (occurrence: US)
  Receive Date: 20210401
  Receipt Date: 20210401
  Transmission Date: 20210717
  Serious: No
  Sender: FDA-Public Use
  Company Number: US-RETROPHIN, INC.-2020RTN00077

PATIENT
  Sex: Male

DRUGS (2)
  1. CHOLIC ACID [Suspect]
     Active Substance: CHOLIC ACID
     Indication: REFSUM^S DISEASE
     Dosage: 500 MG, 1X/DAY
     Dates: start: 20150502
  2. EPIDIOLEX [Suspect]
     Active Substance: CANNABIDIOL

REACTIONS (6)
  - Scratch [Unknown]
  - Hypersensitivity [Unknown]
  - Liver function test increased [Unknown]
  - Pruritus [Unknown]
  - Yellow skin [Unknown]
  - Abdominal pain upper [Unknown]
